FAERS Safety Report 8051859-0 (Version None)
Quarter: 2012Q1

REPORT INFORMATION
  Report Type: 
  Country: None (occurrence: None)
  Receive Date: 20120118
  Receipt Date: 20111215
  Transmission Date: 20120608
  Serious: Yes (Other)
  Sender: FDA-Public Use
  Company Number: GB-RANBAXY-2009RR-23096

PATIENT
  Age: 54 Year
  Sex: Female

DRUGS (2)
  1. RAMIPRIL [Suspect]
     Indication: PRODUCT USED FOR UNKNOWN INDICATION
     Route: 065
  2. BENDROFLUMETHIAZIDE [Concomitant]
     Indication: PRODUCT USED FOR UNKNOWN INDICATION
     Route: 065

REACTIONS (6)
  - CUTANEOUS LUPUS ERYTHEMATOSUS [None]
  - CONDITION AGGRAVATED [None]
  - STOMATITIS [None]
  - GRANULOMA [None]
  - DRUG ERUPTION [None]
  - LICHENOID KERATOSIS [None]
